FAERS Safety Report 23514391 (Version 1)
Quarter: 2024Q1

REPORT INFORMATION
  Report Type: Spontaneous
  Country: US (occurrence: None)
  Receive Date: 20240209
  Receipt Date: 20240209
  Transmission Date: 20240410
  Serious: Yes (Other)
  Sender: FDA-Public Use
  Company Number: None

PATIENT
  Age: 64 Year
  Sex: Male
  Weight: 122.3 kg

DRUGS (1)
  1. DEFINITY [Suspect]
     Active Substance: PERFLUTREN
     Indication: Ultrasound Doppler
     Dosage: FREQUENCY : ONCE;?
     Route: 042
     Dates: start: 20231229, end: 20231229

REACTIONS (2)
  - Blindness [None]
  - Deafness [None]

NARRATIVE: CASE EVENT DATE: 20231229
